FAERS Safety Report 8244948-9 (Version None)
Quarter: 2012Q1

REPORT INFORMATION
  Report Type: 
  Country: None (occurrence: None)
  Receive Date: 20120329
  Receipt Date: 20111006
  Transmission Date: 20120608
  Serious: No
  Sender: FDA-Public Use
  Company Number: US-MYLANLABS-2011S1020849

PATIENT
  Age: 45 Year
  Sex: Male
  Weight: 83.92 kg

DRUGS (4)
  1. NORCO [Concomitant]
     Indication: PAIN
     Dosage: 10MG/325MG
  2. NEURONTIN [Concomitant]
     Indication: PAIN
  3. FENTANYL-100 [Suspect]
     Indication: BACK PAIN
     Dosage: CHANGED Q72H
     Route: 062
  4. FENTANYL-100 [Suspect]
     Indication: NECK PAIN
     Dosage: CHANGED Q72H
     Route: 062

REACTIONS (1)
  - FALSE NEGATIVE INVESTIGATION RESULT [None]
